FAERS Safety Report 21157873 (Version 3)
Quarter: 2022Q3

REPORT INFORMATION
  Report Type: Spontaneous
  Country: US (occurrence: US)
  Receive Date: 20220801
  Receipt Date: 20220816
  Transmission Date: 20221026
  Serious: No
  Sender: FDA-Public Use
  Company Number: US-BRISTOL-MYERS SQUIBB COMPANY-2022-082994

PATIENT
  Age: 80 Year
  Sex: Male

DRUGS (3)
  1. REVLIMID [Suspect]
     Active Substance: LENALIDOMIDE
     Indication: Plasma cell myeloma
     Dosage: TAKE 1 CAPSULE BY MOUTH EVERY DAY ON DAYS 1-21 FOLLOWED BY A 7 DAY BREAK PERIOD
     Route: 048
  2. REVLIMID [Suspect]
     Active Substance: LENALIDOMIDE
     Dosage: TAKE 1 CAPSULE BY MOUTH EVERY DAY ON DAYS 1-21 FOLLOWED BY A 7 DAY BREAK PERIOD
     Route: 048
     Dates: start: 20220718
  3. REVLIMID [Suspect]
     Active Substance: LENALIDOMIDE
     Route: 048

REACTIONS (11)
  - Fall [Unknown]
  - Hyperhidrosis [Unknown]
  - Tremor [Unknown]
  - Headache [Unknown]
  - Dizziness [Unknown]
  - Illness [Unknown]
  - Somnolence [Unknown]
  - Confusional state [Unknown]
  - Feeling abnormal [Unknown]
  - Fatigue [Unknown]
  - Adverse event [Unknown]
